FAERS Safety Report 20724427 (Version 1)
Quarter: 2022Q2

REPORT INFORMATION
  Report Type: Spontaneous
  Country: US (occurrence: None)
  Receive Date: 20220419
  Receipt Date: 20220419
  Transmission Date: 20220720
  Serious: Yes (Death)
  Sender: FDA-Public Use
  Company Number: US-ADAMAS Pharma-ADM202204-000694

PATIENT
  Age: 83 Year
  Sex: Female

DRUGS (1)
  1. OSMOLEX ER [Suspect]
     Active Substance: AMANTADINE
     Indication: Parkinson^s disease
     Route: 048
     Dates: start: 20191015

REACTIONS (1)
  - Death [Fatal]

NARRATIVE: CASE EVENT DATE: 20210802
